FAERS Safety Report 5333004-5 (Version None)
Quarter: 2007Q1

REPORT INFORMATION
  Report Type: 
  Country: None (occurrence: None)
  Receive Date: 20070306
  Receipt Date: 20060531
  Transmission Date: 20070707
  Serious: Yes (Hospitalization)
  Sender: FDA-Public Use
  Company Number: A03200603475

PATIENT
  Age: 82 Year
  Sex: Male
  Weight: 63.49 kg

DRUGS (8)
  1. PLAVIX [Suspect]
     Indication: CEREBROVASCULAR ACCIDENT
     Dosage: 75 MG QD - ORAL
     Route: 048
  2. ACETYLSALICYLIC ACID SRT [Concomitant]
  3. ESOMEPRAZOLE MAGNESIUM [Concomitant]
  4. ATORVASTATIN [Concomitant]
  5. RANOLAZINE [Concomitant]
  6. METOPROLOL SUCCINATE [Concomitant]
  7. ISOSORBIDE MONONITRATE [Concomitant]
  8. GLYCERYL TRINITRATE [Concomitant]

REACTIONS (4)
  - ANAEMIA [None]
  - ANGINA PECTORIS [None]
  - CORONARY ARTERIAL STENT INSERTION [None]
  - SYNCOPE [None]
